FAERS Safety Report 16651575 (Version 3)
Quarter: 2020Q3

REPORT INFORMATION
  Report Type: Spontaneous
  Country: JP (occurrence: JP)
  Receive Date: 20190731
  Receipt Date: 20200714
  Transmission Date: 20201102
  Serious: Yes (Death, Other)
  Sender: FDA-Public Use
  Company Number: JP-BRISTOL-MYERS SQUIBB COMPANY-BMS-2019-073477

PATIENT
  Age: 51 Year
  Sex: Female
  Weight: 49 kg

DRUGS (2)
  1. OLMESARTAN MEDOXOMIL. [Concomitant]
     Active Substance: OLMESARTAN MEDOXOMIL
     Indication: HYPERTENSION
     Dosage: 20 MILLIGRAM
     Route: 065
  2. OPDIVO [Suspect]
     Active Substance: NIVOLUMAB
     Indication: GASTRIC CANCER
     Dosage: 240 MG, TWICE A MONTH
     Route: 041
     Dates: start: 20190516, end: 20190529

REACTIONS (2)
  - Subarachnoid haemorrhage [Fatal]
  - Cerebral infarction [Fatal]

NARRATIVE: CASE EVENT DATE: 20190611
